FAERS Safety Report 9276694 (Version 2)
Quarter: 2013Q2

REPORT INFORMATION
  Report Type: Spontaneous
  Country: BR (occurrence: BR)
  Receive Date: 20130507
  Receipt Date: 20130530
  Transmission Date: 20140414
  Serious: Yes (Other)
  Sender: FDA-Public Use
  Company Number: PHHY2010BR10992

PATIENT
  Age: 59 Year
  Sex: Female
  Weight: 82 kg

DRUGS (16)
  1. ESTALIS [Suspect]
     Indication: HORMONE THERAPY
     Dosage: 1 DF, BIW
     Route: 062
     Dates: start: 2002
  2. ESTALIS [Suspect]
     Indication: FEELING HOT
  3. ESTALIS [Suspect]
     Indication: HEADACHE
  4. ESTALIS [Suspect]
     Indication: ANXIETY
  5. ESTALIS [Suspect]
     Indication: CRYING
  6. ESTALIS [Suspect]
     Indication: HYPERHIDROSIS
  7. ESTALIS [Suspect]
     Indication: OFF LABEL USE
  8. ESTALIS [Suspect]
     Indication: INSOMNIA
  9. ESTREVA [Concomitant]
     Indication: INSOMNIA
     Dosage: 2 DF, UNK
     Route: 062
  10. ESTREVA [Concomitant]
     Indication: FEELING HOT
  11. ESTREVA [Concomitant]
     Indication: TREMOR
  12. ESTREVA [Concomitant]
     Indication: HEADACHE
  13. ESTREVA [Concomitant]
     Indication: ANXIETY
  14. ESTREVA [Concomitant]
     Indication: CRYING
  15. ESTREVA [Concomitant]
     Indication: HYPERHIDROSIS
  16. OMEPRAZOLE [Concomitant]
     Indication: GASTRITIS
     Dosage: 1 DF DAILY
     Route: 048

REACTIONS (20)
  - Breast calcifications [Not Recovered/Not Resolved]
  - Hyperthyroidism [Recovering/Resolving]
  - Tremor [Not Recovered/Not Resolved]
  - Hyperhidrosis [Not Recovered/Not Resolved]
  - Crying [Not Recovered/Not Resolved]
  - Nail disorder [Recovering/Resolving]
  - Blood cholesterol increased [Recovering/Resolving]
  - Rash macular [Not Recovered/Not Resolved]
  - Anxiety [Not Recovered/Not Resolved]
  - Blood pressure increased [Recovering/Resolving]
  - Depression [Not Recovered/Not Resolved]
  - Application site hypersensitivity [Not Recovered/Not Resolved]
  - Pruritus [Not Recovered/Not Resolved]
  - Wound [Not Recovered/Not Resolved]
  - Hot flush [Not Recovered/Not Resolved]
  - Erythema [Not Recovered/Not Resolved]
  - Headache [Not Recovered/Not Resolved]
  - Drug ineffective [Unknown]
  - Insomnia [Not Recovered/Not Resolved]
  - Alopecia [Recovering/Resolving]
